FAERS Safety Report 25032250 (Version 1)
Quarter: 2025Q1

REPORT INFORMATION
  Report Type: Spontaneous
  Country: US (occurrence: US)
  Receive Date: 20250303
  Receipt Date: 20250303
  Transmission Date: 20250409
  Serious: Yes (Other)
  Sender: CIPLA
  Company Number: US-CIPLA LTD.-2025US02460

PATIENT

DRUGS (3)
  1. CYCLOPHOSPHAMIDE [Suspect]
     Active Substance: CYCLOPHOSPHAMIDE
     Indication: Plasma cell myeloma refractory
     Route: 065
  2. PENTOSTATIN [Suspect]
     Active Substance: PENTOSTATIN
     Indication: Plasma cell myeloma refractory
     Route: 065
  3. RAPAMYCIN [Concomitant]
     Active Substance: SIROLIMUS
     Indication: Plasma cell myeloma refractory
     Route: 065

REACTIONS (3)
  - Hypercalcaemia [Unknown]
  - Neutrophil count decreased [Unknown]
  - Febrile neutropenia [Unknown]
